FAERS Safety Report 5323182-6 (Version None)
Quarter: 2007Q2

REPORT INFORMATION
  Report Type: 
  Country: None (occurrence: None)
  Receive Date: 20070220
  Receipt Date: 20061115
  Transmission Date: 20071010
  Serious: No
  Sender: FDA-Public Use
  Company Number: WAES 0611USA04816

PATIENT
  Sex: 0

DRUGS (4)
  1. JANUVIA [Suspect]
     Dosage: PO
     Route: 048
  2. ACTOS [Concomitant]
  3. GLYBURIDE [Concomitant]
  4. METFORMIN HCL [Concomitant]

REACTIONS (2)
  - HOT FLUSH [None]
  - INSOMNIA [None]
